FAERS Safety Report 8714936 (Version 2)
Quarter: 2012Q4

REPORT INFORMATION
  Report Type: 
  Country: TN (occurrence: TN)
  Receive Date: 20120809
  Receipt Date: 20120830
  Transmission Date: 20130627
  Serious: Yes (Other)
  Sender: FDA-Public Use
  Company Number: TN-PFIZER INC-2012191730

PATIENT
  Age: 51 Year
  Sex: Male

DRUGS (7)
  1. CORDARONE [Suspect]
     Indication: ATRIAL FIBRILLATION
     Dosage: 200 mg, daily
     Dates: start: 1982, end: 2007
  2. CORDARONE [Suspect]
     Dosage: UNK
     Dates: start: 200809, end: 200901
  3. DIGOXINE [Suspect]
     Indication: HYPOTHYROIDISM
     Dosage: 0.25 mg, daily
     Dates: start: 2007, end: 200809
  4. DIGOXIN [Suspect]
     Dosage: UNK
     Dates: start: 200901, end: 20091112
  5. SINTROM [Concomitant]
     Dosage: 4 mg, daily
     Dates: start: 1982
  6. LASILIX [Concomitant]
     Dosage: 40 mg, daily
     Dates: start: 1982
  7. LEVOTHYROX [Concomitant]
     Indication: HYPOTHYROIDISM
     Dosage: 100 ug, 1x/day
     Dates: start: 2007

REACTIONS (5)
  - Hypothyroidism [Unknown]
  - Gynaecomastia [Recovered/Resolved]
  - Blood follicle stimulating hormone increased [Recovered/Resolved]
  - Blood luteinising hormone increased [Recovered/Resolved]
  - Oestradiol increased [Unknown]
